FAERS Safety Report 24958974 (Version 1)
Quarter: 2025Q1

REPORT INFORMATION
  Report Type: Spontaneous
  Country: BR (occurrence: BR)
  Receive Date: 20250212
  Receipt Date: 20250212
  Transmission Date: 20250408
  Serious: Yes (Hospitalization, Other)
  Sender: TERSERA THERAPEUTICS
  Company Number: BR-AstraZeneca-CH-00801136A

PATIENT

DRUGS (4)
  1. GOSERELIN [Suspect]
     Active Substance: GOSERELIN
     Indication: Endometriosis
     Route: 042
     Dates: start: 201611, end: 201705
  2. GOSERELIN [Suspect]
     Active Substance: GOSERELIN
     Route: 042
     Dates: start: 20250127
  3. ZOLADEX [Suspect]
     Active Substance: GOSERELIN ACETATE
     Indication: Endometriosis
     Route: 065
  4. LEVOTHYROXINE [Concomitant]
     Active Substance: LEVOTHYROXINE
     Indication: Product used for unknown indication
     Route: 065

REACTIONS (6)
  - Pelvic organ prolapse [Unknown]
  - Gastrointestinal disorder [Unknown]
  - Haemorrhage [Recovered/Resolved]
  - Diarrhoea [Unknown]
  - Proctalgia [Recovered/Resolved]
  - Pelvic pain [Recovered/Resolved]

NARRATIVE: CASE EVENT DATE: 20240801
